FAERS Safety Report 5938370-5 (Version None)
Quarter: 2008Q4

REPORT INFORMATION
  Report Type: 
  Country: None (occurrence: None)
  Receive Date: 20081103
  Receipt Date: 20081024
  Transmission Date: 20090506
  Serious: Yes (Other)
  Sender: FDA-Public Use
  Company Number: US-CELGENEUS-163-21880-08060375

PATIENT
  Sex: Female

DRUGS (2)
  1. REVLIMID [Suspect]
     Indication: MULTIPLE MYELOMA
     Route: 048
     Dates: start: 20080505, end: 20080901
  2. REVLIMID [Suspect]
     Route: 048
     Dates: start: 20081001

REACTIONS (4)
  - ANAEMIA [None]
  - BLOOD COUNT ABNORMAL [None]
  - HAEMORRHAGE URINARY TRACT [None]
  - RASH [None]
